FAERS Safety Report 6391520-1 (Version None)
Quarter: 2009Q4

REPORT INFORMATION
  Report Type: 
  Country: None (occurrence: None)
  Receive Date: 20091006
  Receipt Date: 20091006
  Transmission Date: 20100525
  Serious: Yes (Hospitalization)
  Sender: FDA-Public Use
  Company Number: None

PATIENT
  Age: 59 Year
  Sex: Female
  Weight: 132 kg

DRUGS (2)
  1. TARCEVA [Suspect]
     Indication: NEOPLASM
     Dosage: 150MG DAILY PO
     Route: 048
     Dates: start: 20090402, end: 20090921
  2. CETUXIMAB 150MG/M2 [Suspect]
     Indication: NEOPLASM
     Dosage: 150MG/M2 WEEKLY IV
     Route: 042
     Dates: start: 20090402, end: 20090921

REACTIONS (3)
  - ABDOMINAL ADHESIONS [None]
  - METASTASES TO GASTROINTESTINAL TRACT [None]
  - SMALL INTESTINAL OBSTRUCTION [None]
